FAERS Safety Report 22391879 (Version 3)
Quarter: 2023Q2

REPORT INFORMATION
  Report Type: Report from Study
  Country: CL (occurrence: CL)
  Receive Date: 20230601
  Receipt Date: 20230613
  Transmission Date: 20230722
  Serious: Yes (Other)
  Sender: FDA-Public Use
  Company Number: CL-002147023-NVSC2023CL105582

PATIENT
  Age: 57 Year
  Sex: Female

DRUGS (3)
  1. COSENTYX [Suspect]
     Active Substance: SECUKINUMAB
     Indication: Psoriatic arthropathy
     Dosage: 300 MG, QW
     Route: 058
     Dates: start: 20230426
  2. COSENTYX [Suspect]
     Active Substance: SECUKINUMAB
     Dosage: 300 MG
     Route: 065
     Dates: start: 20230503
  3. COSENTYX [Suspect]
     Active Substance: SECUKINUMAB
     Dosage: 300 MG (5TH DOSE)
     Route: 065
     Dates: start: 20230524

REACTIONS (11)
  - Lupus-like syndrome [Unknown]
  - Rash erythematous [Recovering/Resolving]
  - Dizziness [Recovering/Resolving]
  - Vision blurred [Unknown]
  - Pyrexia [Unknown]
  - Pain [Unknown]
  - Pain in extremity [Unknown]
  - Joint effusion [Unknown]
  - Arthralgia [Unknown]
  - Hypersensitivity [Unknown]
  - Injection site haemorrhage [Unknown]

NARRATIVE: CASE EVENT DATE: 20230427
